FAERS Safety Report 4585378-0 (Version None)
Quarter: 2005Q1

REPORT INFORMATION
  Report Type: 
  Country: None (occurrence: None)
  Receive Date: 20050214
  Receipt Date: 20050209
  Transmission Date: 20050727
  Serious: Yes (Other)
  Sender: FDA-Public Use
  Company Number: THQ2005A00174

PATIENT
  Sex: Male

DRUGS (1)
  1. LUCRIN DEPOT INJECTION (LEUPROLIDE ACETATE) (INJECTION) [Suspect]
     Dosage: 30 MG (30 MG, 1 IN 4 M) UNKNOWN
     Route: 065

REACTIONS (4)
  - HAEMODIALYSIS [None]
  - IDIOSYNCRATIC DRUG REACTION [None]
  - PURPURA [None]
  - TRANSFUSION REACTION [None]
